FAERS Safety Report 25364539 (Version 1)
Quarter: 2025Q2

REPORT INFORMATION
  Report Type: Spontaneous
  Country: US (occurrence: None)
  Receive Date: 20250527
  Receipt Date: 20250527
  Transmission Date: 20250717
  Serious: Yes (Hospitalization, Disabling)
  Sender: FDA-CTU
  Company Number: None

PATIENT
  Age: 47 Year
  Sex: Female
  Weight: 53.1 kg

DRUGS (4)
  1. LEXAPRO [Suspect]
     Active Substance: ESCITALOPRAM OXALATE
     Indication: Postpartum anxiety
     Dates: start: 20020502, end: 20150312
  2. EFFEXOR [Suspect]
     Active Substance: VENLAFAXINE HYDROCHLORIDE
  3. PROZAC [Suspect]
     Active Substance: FLUOXETINE HYDROCHLORIDE
  4. VITAMIN D [Concomitant]
     Active Substance: VITAMIN D NOS

REACTIONS (22)
  - General physical health deterioration [None]
  - Gastrointestinal disorder [None]
  - Food allergy [None]
  - Anxiety [None]
  - Depression [None]
  - Flat affect [None]
  - Exercise tolerance decreased [None]
  - Sexual dysfunction [None]
  - Weight increased [None]
  - Therapy change [None]
  - Withdrawal syndrome [None]
  - Migraine [None]
  - Depersonalisation/derealisation disorder [None]
  - Agoraphobia [None]
  - Suicidal ideation [None]
  - Skin burning sensation [None]
  - Paraesthesia [None]
  - Hypoaesthesia [None]
  - Urinary tract infection [None]
  - Oral discomfort [None]
  - Rash [None]
  - Choking sensation [None]

NARRATIVE: CASE EVENT DATE: 20151115
